FAERS Safety Report 7415154-2 (Version None)
Quarter: 2011Q2

REPORT INFORMATION
  Report Type: 
  Country: None (occurrence: None)
  Receive Date: 20110414
  Receipt Date: 20110404
  Transmission Date: 20111010
  Serious: Yes (Other)
  Sender: FDA-Public Use
  Company Number: PHHY2011CA13410

PATIENT
  Sex: Male

DRUGS (1)
  1. RIVASTIGMINE [Suspect]
     Indication: DEMENTIA ALZHEIMER'S TYPE
     Dosage: 9.5 MG/24 HOURS
     Route: 062
     Dates: start: 20100216, end: 20101001

REACTIONS (4)
  - CONFUSIONAL STATE [None]
  - INCONTINENCE [None]
  - AGITATION [None]
  - SOMNAMBULISM [None]
